FAERS Safety Report 9187944 (Version 1)
Quarter: 2013Q1

REPORT INFORMATION
  Report Type: Spontaneous
  Country: US (occurrence: US)
  Receive Date: 20130325
  Receipt Date: 20130325
  Transmission Date: 20140127
  Serious: No
  Sender: FDA-Public Use
  Company Number: US-MYLANLABS-2012S1019856

PATIENT
  Age: 73 Year
  Sex: Female

DRUGS (4)
  1. FENTANYL TRANSDERMAL SYSTEM [Suspect]
     Indication: BACK PAIN
     Dosage: Q72H
     Route: 062
     Dates: start: 201208
  2. SYNTHYROID [Concomitant]
     Indication: HYPOTHYROIDISM
  3. NEXIUM [Concomitant]
     Indication: GASTROOESOPHAGEAL REFLUX DISEASE
  4. LIBIDO [Concomitant]
     Indication: VULVOVAGINAL DRYNESS
     Route: 048

REACTIONS (3)
  - Drug effect decreased [Not Recovered/Not Resolved]
  - Back pain [Not Recovered/Not Resolved]
  - Hot flush [Not Recovered/Not Resolved]
